FAERS Safety Report 5390475-6 (Version None)
Quarter: 2007Q3

REPORT INFORMATION
  Report Type: 
  Country: None (occurrence: None)
  Receive Date: 20070718
  Receipt Date: 20061114
  Transmission Date: 20080115
  Serious: No
  Sender: FDA-Public Use
  Company Number: US-KINGPHARMUSA00001-K200601477

PATIENT

DRUGS (3)
  1. LEVOXYL [Suspect]
     Indication: HYPOTHYROIDISM
     Dosage: 100 MCG, QD
     Route: 048
  2. BONIVA [Concomitant]
     Indication: OSTEOPOROSIS
     Dosage: 1ST WEDNESDAY OF THE MONTH
     Route: 042
  3. TRAZODONE HCL [Concomitant]
     Indication: INSOMNIA
     Dosage: UNK, QD
     Route: 048

REACTIONS (1)
  - ORAL DISCOMFORT [None]
